FAERS Safety Report 8996759 (Version 1)
Quarter: 2012Q4

REPORT INFORMATION
  Report Type: Spontaneous
  Country: US (occurrence: None)
  Receive Date: 20121228
  Receipt Date: 20121228
  Transmission Date: 20130627
  Serious: No
  Sender: FDA-Public Use
  Company Number: None

PATIENT
  Age: 93 Year
  Sex: Female
  Weight: 51.71 kg

DRUGS (1)
  1. ZIOPTAN [Suspect]
     Indication: OPEN ANGLE GLAUCOMA
     Dosage: one gtt each eye once daily eye
     Dates: start: 20121001, end: 20121201

REACTIONS (5)
  - Eyelids pruritus [None]
  - Erythema of eyelid [None]
  - Productive cough [None]
  - Dysphonia [None]
  - Unevaluable event [None]
